FAERS Safety Report 19115815 (Version 2)
Quarter: 2021Q2

REPORT INFORMATION
  Report Type: Spontaneous
  Country: US (occurrence: US)
  Receive Date: 20210409
  Receipt Date: 20210521
  Transmission Date: 20210717
  Serious: Yes (Other)
  Sender: FDA-Public Use
  Company Number: US-009507513-2104USA001810

PATIENT
  Sex: Female

DRUGS (4)
  1. CX?024414. [Suspect]
     Active Substance: CX-024414
     Indication: PROPHYLAXIS
     Dosage: UNK
     Dates: start: 2021
  2. LENVATINIB MESYLATE [Suspect]
     Active Substance: LENVATINIB MESYLATE
     Indication: ENDOMETRIAL CANCER
     Dosage: 10 MILLIGRAM, UNK
     Route: 048
     Dates: start: 20210325
  3. KEYTRUDA [Suspect]
     Active Substance: PEMBROLIZUMAB
     Indication: ENDOMETRIAL CANCER
     Dosage: UNK
  4. CX?024414. [Suspect]
     Active Substance: CX-024414
     Dosage: UNK
     Dates: start: 2021

REACTIONS (8)
  - Cough [Unknown]
  - Blood creatinine increased [Unknown]
  - Back pain [Unknown]
  - Urinary incontinence [Unknown]
  - Arthralgia [Unknown]
  - Malignant neoplasm progression [Unknown]
  - Drug ineffective [Unknown]
  - Blood urea increased [Unknown]

NARRATIVE: CASE EVENT DATE: 2021
